FAERS Safety Report 6921078-7 (Version None)
Quarter: 2010Q3

REPORT INFORMATION
  Report Type: 
  Country: None (occurrence: None)
  Receive Date: 20100812
  Receipt Date: 20100802
  Transmission Date: 20110219
  Serious: Yes (Other)
  Sender: FDA-Public Use
  Company Number: NG-ROCHE-719610

PATIENT
  Age: 15 Year
  Sex: Female

DRUGS (1)
  1. PYRIMETHAMINE/SULFADOXINE [Suspect]
     Indication: MALARIA
     Route: 065

REACTIONS (5)
  - BLINDNESS [None]
  - CONGENITAL EYELID MALFORMATION [None]
  - CONJUNCTIVITIS [None]
  - STEVENS-JOHNSON SYNDROME [None]
  - SYMBLEPHARON [None]
